FAERS Safety Report 21175083 (Version 5)
Quarter: 2022Q4

REPORT INFORMATION
  Report Type: Report from Study
  Country: BR (occurrence: BR)
  Receive Date: 20220805
  Receipt Date: 20221103
  Transmission Date: 20230113
  Serious: Yes (Life-Threatening, Other)
  Sender: FDA-Public Use
  Company Number: BR-SA-SAC20220801001551

PATIENT
  Age: 59 Year
  Sex: Male
  Weight: 70 kg

DRUGS (12)
  1. AVALGLUCOSIDASE ALFA [Suspect]
     Active Substance: AVALGLUCOSIDASE ALFA
     Indication: Glycogen storage disease type II
     Dosage: UNK
     Route: 041
     Dates: start: 20190328, end: 20200304
  2. AVALGLUCOSIDASE ALFA [Suspect]
     Active Substance: AVALGLUCOSIDASE ALFA
     Dosage: UNK
     Route: 041
     Dates: start: 20220622, end: 20220622
  3. LOSARTAN [Concomitant]
     Active Substance: LOSARTAN
     Indication: Hypertension
     Dosage: UNK
     Route: 048
     Dates: start: 2015
  4. BISOPROLOL FUMARATE [Concomitant]
     Active Substance: BISOPROLOL FUMARATE
     Indication: Hypertension
     Dosage: UNK
     Route: 048
     Dates: start: 2016
  5. SPIRONOLACTONE [Concomitant]
     Active Substance: SPIRONOLACTONE
     Indication: Hypertension
     Dosage: UNK
     Route: 048
     Dates: start: 2016
  6. SERTRALINE [Concomitant]
     Active Substance: SERTRALINE HYDROCHLORIDE
     Indication: Anxiety
     Dosage: UNK
     Route: 048
     Dates: start: 2016
  7. DOCONEXENT\ICOSAPENT [Concomitant]
     Active Substance: DOCONEXENT\ICOSAPENT
     Indication: Prophylaxis
     Dosage: UNK
     Route: 048
     Dates: start: 20211112
  8. OXYGEN [Concomitant]
     Active Substance: OXYGEN
     Dosage: 5 L/MIN
     Route: 055
     Dates: start: 20220510
  9. ENOXAPARIN [Concomitant]
     Active Substance: ENOXAPARIN
     Indication: Prophylaxis
     Dosage: UNK
     Route: 058
     Dates: start: 20220511, end: 20220714
  10. PANTOPRAZOLE [Concomitant]
     Active Substance: PANTOPRAZOLE
     Indication: Prophylaxis
     Dosage: UNK
     Route: 042
     Dates: start: 20220511, end: 20220714
  11. LEVOFLOXACIN [Concomitant]
     Active Substance: LEVOFLOXACIN
     Dosage: UNK
     Route: 042
     Dates: start: 20220601, end: 20220615
  12. HYDROXYZINE HYDROCHLORIDE [Concomitant]
     Active Substance: HYDROXYZINE HYDROCHLORIDE
     Indication: Prophylaxis
     Dosage: UNK
     Route: 048
     Dates: start: 20220622, end: 20220622

REACTIONS (2)
  - Hypotension [Recovered/Resolved]
  - Depressed level of consciousness [Recovered/Resolved]

NARRATIVE: CASE EVENT DATE: 20220622
